FAERS Safety Report 7835604-7 (Version None)
Quarter: 2011Q4

REPORT INFORMATION
  Report Type: 
  Country: None (occurrence: None)
  Receive Date: 20111024
  Receipt Date: 20111017
  Transmission Date: 20120403
  Serious: Yes (Hospitalization)
  Sender: FDA-Public Use
  Company Number: PHHY2011CA92806

PATIENT
  Sex: Male

DRUGS (1)
  1. ZOMETA [Suspect]
     Indication: LUNG NEOPLASM MALIGNANT
     Dosage: 4 MG, EVERY FOUR WEEKS
     Route: 042
     Dates: start: 20110822

REACTIONS (1)
  - GENERAL PHYSICAL HEALTH DETERIORATION [None]
